FAERS Safety Report 16926006 (Version 2)
Quarter: 2020Q1

REPORT INFORMATION
  Report Type: Spontaneous
  Country: GR (occurrence: GR)
  Receive Date: 20191016
  Receipt Date: 20200205
  Transmission Date: 20200409
  Serious: Yes (Other)
  Sender: FDA-Public Use
  Company Number: GR-SHIRE-GR201933064

PATIENT

DRUGS (11)
  1. 476 (MESALAZINE/MESALAMINE) [Suspect]
     Active Substance: MESALAMINE
     Dosage: 3.6 GRAM, 1X/DAY:QD, QD (16 WEEK OF PREGNANCY)
     Route: 048
  2. VANCOMYCIN [Suspect]
     Active Substance: VANCOMYCIN
     Indication: COLITIS ULCERATIVE
     Dosage: 125 MILLIGRAM, UNKNOWN, 125 MG X 4, UNK
     Route: 048
  3. 476 (MESALAZINE/MESALAMINE) [Suspect]
     Active Substance: MESALAMINE
     Indication: COLITIS ULCERATIVE
     Dosage: 3 GRAM, 1X/DAY:QD
     Route: 061
  4. CICLOSPORIN [Suspect]
     Active Substance: CYCLOSPORINE
     Dosage: 100 MILLIGRAM, 1X/DAY:QD, QD (30 WEEK OF PREGNANCY)
     Route: 048
  5. VITAMIN D [COLECALCIFEROL] [Concomitant]
     Active Substance: CHOLECALCIFEROL
     Indication: PRODUCT USED FOR UNKNOWN INDICATION
     Route: 065
  6. CICLOSPORIN [Suspect]
     Active Substance: CYCLOSPORINE
     Dosage: 200 MILLIGRAM, 1X/DAY:QD,  QD (32 WEEK OF PREGNANCY)
     Route: 042
  7. PREDNISOLONE. [Suspect]
     Active Substance: PREDNISOLONE
     Indication: COLITIS ULCERATIVE
     Dosage: 50 MILLIGRAM, 1X/DAY:QD,  QD (DAY 0 AFTER ASSESSMENT OF ULCERATIVE COLITIS)
     Route: 042
  8. PREDNISOLONE. [Suspect]
     Active Substance: PREDNISOLONE
     Dosage: 40 MILLIGRAM, 1X/DAY:QD, QD (29 WEEK OF PREGNANCY)
     Route: 048
  9. CICLOSPORIN [Suspect]
     Active Substance: CYCLOSPORINE
     Dosage: 300 MILLIGRAM, 1X/DAY:QD, 300 MG, QD (34 WEEK OF PREGNANCY)
     Route: 048
  10. CICLOSPORIN [Suspect]
     Active Substance: CYCLOSPORINE
     Indication: COLITIS ULCERATIVE
     Dosage: 300 MILLIGRAM, 1X/DAY:QD , QD (35 WEEK) OF PREGNANCY
     Route: 048
  11. CALCIUM [Concomitant]
     Active Substance: CALCIUM
     Indication: PRODUCT USED FOR UNKNOWN INDICATION
     Route: 065

REACTIONS (8)
  - Amniotic cavity infection [Unknown]
  - Pre-eclampsia [Unknown]
  - Product use in unapproved indication [Unknown]
  - Maternal exposure during pregnancy [Unknown]
  - Clostridium test positive [Unknown]
  - Drug ineffective [Unknown]
  - Bacteraemia [Unknown]
  - Glutamate dehydrogenase level abnormal [Unknown]
